FAERS Safety Report 8824351 (Version 1)
Quarter: 2012Q4

REPORT INFORMATION
  Report Type: Report from Study
  Country: CA (occurrence: CA)
  Receive Date: 20121004
  Receipt Date: 20121004
  Transmission Date: 20130627
  Serious: Yes (Other)
  Sender: FDA-Public Use
  Company Number: CA-JNJFOC-20120910817

PATIENT
  Sex: Male
  Weight: 106 kg

DRUGS (5)
  1. REMICADE [Suspect]
     Indication: PSORIASIS
     Route: 042
     Dates: start: 20100101
  2. FOLIC ACID [Concomitant]
     Route: 065
  3. METHOTREXATE [Concomitant]
     Dosage: 4 tablet
     Route: 065
  4. OLANZAPINE [Concomitant]
     Route: 065
  5. TOPICORT CREAM [Concomitant]
     Dosage: 0.05 (unit unspecified)
     Route: 065

REACTIONS (3)
  - Laceration [Recovered/Resolved]
  - Haematoma [Recovered/Resolved]
  - Limb injury [Recovered/Resolved]
